FAERS Safety Report 7514597-6 (Version None)
Quarter: 2011Q2

REPORT INFORMATION
  Report Type: 
  Country: None (occurrence: None)
  Receive Date: 20110520
  Receipt Date: 20110506
  Transmission Date: 20111010
  Serious: Yes (Hospitalization)
  Sender: FDA-Public Use
  Company Number: SPI201100087

PATIENT
  Age: 76 Year
  Sex: Female
  Weight: 54.4 kg

DRUGS (5)
  1. AMITIZA [Suspect]
     Indication: CONSTIPATION
     Dosage: 24 MCG, QD, ORAL
     Route: 048
     Dates: start: 20091201
  2. AMITIZA [Suspect]
     Indication: CONSTIPATION
     Dosage: 24 MCG, QD, ORAL
     Route: 048
     Dates: start: 20100501, end: 20100101
  3. AMITIZA [Suspect]
     Indication: CONSTIPATION
     Dosage: 24 MCG, QD, ORAL
     Route: 048
     Dates: start: 20101202, end: 20110302
  4. VOLTAREN (DICLOFENAC SODIIUM) [Concomitant]
  5. EVISTA [Concomitant]

REACTIONS (3)
  - CHEST PAIN [None]
  - HYPERSENSITIVITY [None]
  - DYSPNOEA [None]
